FAERS Safety Report 14123290 (Version 1)
Quarter: 2017Q4

REPORT INFORMATION
  Report Type: Spontaneous
  Country: GB (occurrence: GB)
  Receive Date: 20171025
  Receipt Date: 20171025
  Transmission Date: 20180321
  Serious: Yes (Death)
  Sender: FDA-Public Use
  Company Number: GB-AUROBINDO-AUR-APL-2017-42344

PATIENT
  Age: 41 Year
  Sex: Female

DRUGS (2)
  1. CITALOPRAM [Suspect]
     Active Substance: CITALOPRAM HYDROBROMIDE
     Indication: PRODUCT USED FOR UNKNOWN INDICATION
     Dosage: 15 MG, ONCE A DAY
     Route: 048
  2. OLANZAPINE 5MG [Suspect]
     Active Substance: OLANZAPINE
     Indication: PSYCHOTIC DISORDER
     Dosage: 5 MG, ONCE A DAY
     Route: 048

REACTIONS (2)
  - Drug monitoring procedure not performed [Unknown]
  - Death [Fatal]
